FAERS Safety Report 4374073-9 (Version None)
Quarter: 2004Q2

REPORT INFORMATION
  Report Type: 
  Country: None (occurrence: None)
  Receive Date: 20040603
  Receipt Date: 20040519
  Transmission Date: 20050107
  Serious: Yes (Other)
  Sender: FDA-Public Use
  Company Number: GBS040414761

PATIENT
  Age: 76 Year
  Sex: Female

DRUGS (6)
  1. ZYPREXA [Suspect]
     Indication: AGITATION
     Dosage: 5 MG DAY
     Dates: end: 20040331
  2. ZYPREXA [Suspect]
     Indication: DEMENTIA
     Dosage: 5 MG DAY
     Dates: end: 20040331
  3. ZOTON (LANZOPRAZOLE) [Concomitant]
  4. IRON SULFATETHIAMIN COMPOUND TAB [Concomitant]
  5. ARICEPT [Concomitant]
  6. ALPRAZOLAM [Concomitant]

REACTIONS (1)
  - DEEP VEIN THROMBOSIS [None]
